FAERS Safety Report 11869684 (Version 7)
Quarter: 2016Q3

REPORT INFORMATION
  Report Type: Spontaneous
  Country: IT (occurrence: IT)
  Receive Date: 20151228
  Receipt Date: 20160824
  Transmission Date: 20161109
  Serious: Yes (Other)
  Sender: FDA-Public Use
  Company Number: IT-ROCHE-1684214

PATIENT
  Age: 39 Year
  Sex: Male

DRUGS (7)
  1. SOVALDI [Suspect]
     Active Substance: SOFOSBUVIR
     Indication: HEPATIC CIRRHOSIS
     Dosage: BOTTLE (HDPE) - 28 TABLETS,
     Route: 048
     Dates: start: 20150729, end: 20160112
  2. DAKLINZA [Suspect]
     Active Substance: DACLATASVIR
     Indication: HEPATIC CIRRHOSIS
     Dosage: BLISTER PACK (PVC/PCTFE/AL) - 28 TABLETS, LATEST DOSE ON 12-JAN-2016
     Route: 048
     Dates: start: 20150729, end: 20160112
  3. CLEXANE [Concomitant]
     Active Substance: ENOXAPARIN SODIUM
     Dosage: 6000 I.U. AXA/0.6 ML -10 PRE-FILLED SYRINGES CONTAINING 0.6 ML
     Route: 058
  4. PROPRANOLOL HYDROCHLORIDE. [Concomitant]
     Active Substance: PROPRANOLOL HYDROCHLORIDE
     Route: 048
  5. DOMPERIDONE MALEATE [Concomitant]
     Active Substance: DOMPERIDONE MALEATE
  6. COPEGUS [Suspect]
     Active Substance: RIBAVIRIN
     Indication: HEPATIC CIRRHOSIS
     Route: 048
     Dates: start: 20150729, end: 20160112
  7. LANSOPRAZOLE. [Concomitant]
     Active Substance: LANSOPRAZOLE
     Route: 048

REACTIONS (4)
  - Hepatic vein thrombosis [Not Recovered/Not Resolved]
  - Hepatocellular carcinoma [Recovering/Resolving]
  - Hepatic cancer [Recovering/Resolving]
  - Hepatic neoplasm [Recovering/Resolving]

NARRATIVE: CASE EVENT DATE: 20151218
